FAERS Safety Report 6147969-5 (Version None)
Quarter: 2009Q2

REPORT INFORMATION
  Report Type: 
  Country: None (occurrence: None)
  Receive Date: 20090408
  Receipt Date: 20090309
  Transmission Date: 20091009
  Serious: No
  Sender: FDA-Public Use
  Company Number: US-BAYER-200833251NA

PATIENT
  Age: 30 Year
  Sex: Female
  Weight: 52 kg

DRUGS (3)
  1. MIRENA [Suspect]
     Indication: CONTRACEPTION
     Dosage: CONTINUOUS
     Route: 015
     Dates: start: 20080612, end: 20080626
  2. ANTIBIOTICS [Concomitant]
     Indication: DRUG USE FOR UNKNOWN INDICATION
  3. PREVACID [Concomitant]
     Indication: DRUG USE FOR UNKNOWN INDICATION
     Dosage: TOTAL DAILY DOSE: 30 MG
     Route: 048

REACTIONS (9)
  - ANXIETY [None]
  - COMPLICATION OF DEVICE INSERTION [None]
  - COMPLICATION OF DEVICE REMOVAL [None]
  - DEVICE BREAKAGE [None]
  - DEVICE FAILURE [None]
  - DEVICE SHAPE ALTERATION [None]
  - IUCD COMPLICATION [None]
  - OVARIAN CYST [None]
  - PELVIC PAIN [None]
